FAERS Safety Report 7077754-1 (Version None)
Quarter: 2010Q4

REPORT INFORMATION
  Report Type: 
  Country: None (occurrence: None)
  Receive Date: 20101101
  Receipt Date: 20100920
  Transmission Date: 20110411
  Serious: Yes (Other)
  Sender: FDA-Public Use
  Company Number: PHHY2010US62587

PATIENT
  Sex: Female

DRUGS (2)
  1. EXJADE [Suspect]
     Dosage: 1000 MG, QD
     Route: 048
     Dates: start: 20100701
  2. EXJADE [Suspect]
     Dosage: 1500 MG, Q96H

REACTIONS (7)
  - CONSTIPATION [None]
  - DIARRHOEA [None]
  - DRUG INEFFECTIVE [None]
  - EYE HAEMORRHAGE [None]
  - NAUSEA [None]
  - SERUM FERRITIN INCREASED [None]
  - VOMITING [None]
